FAERS Safety Report 20707722 (Version 2)
Quarter: 2022Q2

REPORT INFORMATION
  Report Type: Report from Study
  Country: US (occurrence: US)
  Receive Date: 20220413
  Receipt Date: 20220416
  Transmission Date: 20220721
  Serious: Yes (Hospitalization, Other)
  Sender: FDA-Public Use
  Company Number: US-JNJFOC-20220411995

PATIENT
  Age: 61 Year
  Sex: Female

DRUGS (1)
  1. TREMFYA [Suspect]
     Active Substance: GUSELKUMAB
     Indication: Psoriasis
     Route: 058
     Dates: start: 20210828

REACTIONS (4)
  - Respiratory tract infection bacterial [Unknown]
  - Type 2 diabetes mellitus [Unknown]
  - Fall [Unknown]
  - Psoriasis [Unknown]

NARRATIVE: CASE EVENT DATE: 20220113
